FAERS Safety Report 4709729-9 (Version None)
Quarter: 2005Q3

REPORT INFORMATION
  Report Type: 
  Country: None (occurrence: None)
  Receive Date: 20050707
  Receipt Date: 20050622
  Transmission Date: 20060218
  Serious: Yes (Other)
  Sender: FDA-Public Use
  Company Number: USA0506101094

PATIENT
  Age: 9 Year
  Sex: Male
  Weight: 33 kg

DRUGS (4)
  1. STRATTERA [Suspect]
     Indication: ATTENTION DEFICIT/HYPERACTIVITY DISORDER
     Dosage: 10 MG/EVERY DAY
     Dates: start: 20040401, end: 20050621
  2. DEXTROAMPHETAMINE [Concomitant]
  3. CLONIDINE [Concomitant]
  4. LORATADINE [Concomitant]

REACTIONS (4)
  - BONE DISORDER [None]
  - DECREASED APPETITE [None]
  - FALL [None]
  - WEIGHT DECREASED [None]
